FAERS Safety Report 7518794-5 (Version None)
Quarter: 2011Q2

REPORT INFORMATION
  Report Type: 
  Country: None (occurrence: None)
  Receive Date: 20110602
  Receipt Date: 20110525
  Transmission Date: 20111010
  Serious: No
  Sender: FDA-Public Use
  Company Number: US-PFIZER INC-2011113585

PATIENT
  Sex: Female
  Weight: 72.5 kg

DRUGS (2)
  1. ADVIL PM [Suspect]
     Dosage: 1 DF, 2X/DAY
     Route: 048
     Dates: start: 20110525
  2. ADVIL PM [Suspect]
     Indication: INSOMNIA
     Dosage: 1 DF, 3X/DAY
     Route: 048
     Dates: start: 20110524, end: 20110525

REACTIONS (3)
  - OVERDOSE [None]
  - HYPERHIDROSIS [None]
  - DRUG INEFFECTIVE [None]
